FAERS Safety Report 25670346 (Version 2)
Quarter: 2025Q4

REPORT INFORMATION
  Report Type: Spontaneous
  Country: US (occurrence: US)
  Receive Date: 20250812
  Receipt Date: 20251006
  Transmission Date: 20260117
  Serious: Yes (Other)
  Sender: PFIZER
  Company Number: US-PFIZER INC-PV202500096756

PATIENT
  Age: 40 Year
  Sex: Female

DRUGS (1)
  1. TIVDAK [Suspect]
     Active Substance: TISOTUMAB VEDOTIN-TFTV
     Indication: Cervix carcinoma recurrent
     Dosage: UNK IU, EVERY 3 WEEKS
     Dates: start: 20241206, end: 20250606

REACTIONS (5)
  - Metastases to lung [Recovering/Resolving]
  - Neuropathy peripheral [Recovering/Resolving]
  - Pneumonitis [Recovering/Resolving]
  - Dry eye [Recovering/Resolving]
  - Cough [Recovering/Resolving]
